FAERS Safety Report 24798576 (Version 4)
Quarter: 2025Q1

REPORT INFORMATION
  Report Type: Spontaneous
  Country: IT (occurrence: IT)
  Receive Date: 20250102
  Receipt Date: 20250204
  Transmission Date: 20250408
  Serious: Yes (Other)
  Sender: ROCHE
  Company Number: None

PATIENT
  Age: 80 Year
  Sex: Male
  Weight: 73 kg

DRUGS (4)
  1. CAPECITABINE [Suspect]
     Active Substance: CAPECITABINE
     Indication: Adenocarcinoma of colon
     Route: 048
     Dates: start: 20240820, end: 20240902
  2. CAPECITABINE [Suspect]
     Active Substance: CAPECITABINE
     Route: 065
     Dates: start: 20241030, end: 20241030
  3. BEVACIZUMAB [Suspect]
     Active Substance: BEVACIZUMAB
     Indication: Adenocarcinoma of colon
     Route: 040
     Dates: start: 20240819, end: 20240819
  4. BEVACIZUMAB [Suspect]
     Active Substance: BEVACIZUMAB
     Route: 040
     Dates: start: 20241030, end: 20241030

REACTIONS (3)
  - Diarrhoea [Recovered/Resolved]
  - Hyperbilirubinaemia [Unknown]
  - Gastrooesophageal reflux disease [Recovering/Resolving]

NARRATIVE: CASE EVENT DATE: 20240825
